FAERS Safety Report 6631163-5 (Version None)
Quarter: 2010Q1

REPORT INFORMATION
  Report Type: 
  Country: None (occurrence: None)
  Receive Date: 20100309
  Receipt Date: 20100223
  Transmission Date: 20100710
  Serious: Yes (Hospitalization)
  Sender: FDA-Public Use
  Company Number: 233808K09USA

PATIENT
  Age: 65 Year
  Sex: Male

DRUGS (6)
  1. REBIF [Suspect]
     Indication: MULTIPLE SCLEROSIS
     Dosage: 44 MCG, 3 IN 1 WEEKS, SUBCUTANEOUS
     Route: 058
     Dates: start: 20080804
  2. METFORMIN HCL [Concomitant]
  3. ARICEPT [Concomitant]
  4. VESICAR (SOLIFENACIN) [Concomitant]
  5. COUMADIN [Concomitant]
  6. LYRICA [Concomitant]

REACTIONS (13)
  - BRAIN INJURY [None]
  - CEREBRAL HAEMORRHAGE [None]
  - CEREBRAL THROMBOSIS [None]
  - CEREBROSPINAL FLUID RETENTION [None]
  - CONFUSIONAL STATE [None]
  - CONVULSION [None]
  - DECUBITUS ULCER [None]
  - DEVICE RELATED INFECTION [None]
  - HEADACHE [None]
  - LYMPHADENOPATHY [None]
  - PYREXIA [None]
  - STAPHYLOCOCCAL INFECTION [None]
  - THROMBOSIS [None]
